FAERS Safety Report 13469871 (Version 4)
Quarter: 2018Q3

REPORT INFORMATION
  Report Type: Spontaneous
  Country: US (occurrence: US)
  Receive Date: 20170422
  Receipt Date: 20180920
  Transmission Date: 20181010
  Serious: No
  Sender: FDA-Public Use
  Company Number: PHEH2017US011817

PATIENT
  Age: 63 Year
  Sex: Male

DRUGS (1)
  1. VOTRIENT [Suspect]
     Active Substance: PAZOPANIB HYDROCHLORIDE
     Indication: RENAL CANCER
     Dosage: 4 DF, QD (800 MG)
     Route: 048
     Dates: start: 20170214

REACTIONS (6)
  - Blood pressure abnormal [Unknown]
  - Weight increased [Unknown]
  - Hyperhidrosis [Unknown]
  - Fatigue [Unknown]
  - Diarrhoea [Unknown]
  - Peripheral swelling [Unknown]

NARRATIVE: CASE EVENT DATE: 20170812
